FAERS Safety Report 8936915 (Version 2)
Quarter: 2013Q2

REPORT INFORMATION
  Report Type: Report from Study
  Country: JP (occurrence: JP)
  Receive Date: 20121130
  Receipt Date: 20130503
  Transmission Date: 20140414
  Serious: Yes (Hospitalization)
  Sender: FDA-Public Use
  Company Number: JP-ROCHE-1141049

PATIENT
  Age: 64 Year
  Sex: Female

DRUGS (5)
  1. RANIBIZUMAB [Suspect]
     Indication: AGE-RELATED MACULAR DEGENERATION
     Route: 050
     Dates: start: 20120731
  2. RANIBIZUMAB [Suspect]
     Route: 050
     Dates: start: 20120919
  3. VISUDYNE [Concomitant]
  4. CRAVIT [Concomitant]
     Route: 065
     Dates: start: 201207, end: 201209
  5. ANTIBIOTIC DROPS [Concomitant]

REACTIONS (3)
  - Endophthalmitis [Recovering/Resolving]
  - Drug eruption [Unknown]
  - HLA marker study positive [Unknown]
